FAERS Safety Report 9854239 (Version 1)
Quarter: 2014Q1

REPORT INFORMATION
  Report Type: Spontaneous
  Country: CA (occurrence: CA)
  Receive Date: 20140130
  Receipt Date: 20140130
  Transmission Date: 20141002
  Serious: Yes (Death)
  Sender: FDA-Public Use
  Company Number: CA-AMGEN-CANSP2014005889

PATIENT
  Age: 80 Year
  Sex: Male

DRUGS (1)
  1. PROLIA [Suspect]
     Indication: OSTEOPOROSIS
     Route: 065

REACTIONS (1)
  - Death [Fatal]
